FAERS Safety Report 16929452 (Version 1)
Quarter: 2019Q4

REPORT INFORMATION
  Report Type: Spontaneous
  Country: US (occurrence: US)
  Receive Date: 20191016
  Receipt Date: 20191016
  Transmission Date: 20200122
  Serious: Yes (Other)
  Sender: FDA-Public Use
  Company Number: None

PATIENT
  Age: 83 Year
  Sex: Female
  Weight: 45.45 kg

DRUGS (2)
  1. VALACYCLOVIR ORAL TABLETS [Concomitant]
  2. LEXISCAN [Suspect]
     Active Substance: REGADENOSON
     Indication: CARDIAC STRESS TEST

REACTIONS (4)
  - Atrioventricular block [None]
  - Post-traumatic stress disorder [None]
  - Unresponsive to stimuli [None]
  - Heart rate decreased [None]
